FAERS Safety Report 10023768 (Version 1)
Quarter: 2014Q1

REPORT INFORMATION
  Report Type: Spontaneous
  Country: ET (occurrence: ET)
  Receive Date: 20140320
  Receipt Date: 20140320
  Transmission Date: 20141002
  Serious: Yes (Life-Threatening)
  Sender: FDA-Public Use
  Company Number: ET-MYLANLABS-2014S1005446

PATIENT
  Age: 33 Year
  Sex: Female

DRUGS (2)
  1. LIDOCAINE [Suspect]
     Indication: LOCAL ANAESTHESIA
     Route: 056
  2. EPINEPHRINE [Suspect]
     Dosage: 1:100000

REACTIONS (2)
  - Necrotising fasciitis [Not Recovered/Not Resolved]
  - Ocular retrobulbar haemorrhage [Not Recovered/Not Resolved]
